FAERS Safety Report 7375520-0 (Version None)
Quarter: 2011Q1

REPORT INFORMATION
  Report Type: 
  Country: None (occurrence: None)
  Receive Date: 20110325
  Receipt Date: 20110311
  Transmission Date: 20110831
  Serious: Yes (Hospitalization)
  Sender: FDA-Public Use
  Company Number: US-JNJFOC-20110305940

PATIENT
  Age: 11 Year
  Sex: Female

DRUGS (4)
  1. REMICADE [Suspect]
     Indication: CROHN'S DISEASE
     Route: 042
  2. BENADRYL [Concomitant]
     Indication: PREMEDICATION
  3. CORTICOSTEROIDS [Concomitant]
     Indication: PREMEDICATION
  4. ACETAMINOPHEN [Concomitant]
     Indication: PREMEDICATION

REACTIONS (7)
  - ATAXIA [None]
  - DELUSION [None]
  - INFUSION RELATED REACTION [None]
  - CONVERSION DISORDER [None]
  - DISORIENTATION [None]
  - HYPERVENTILATION [None]
  - VISUAL IMPAIRMENT [None]
